FAERS Safety Report 5992403-9 (Version None)
Quarter: 2008Q4

REPORT INFORMATION
  Report Type: 
  Country: None (occurrence: None)
  Receive Date: 20081202
  Receipt Date: 20080114
  Transmission Date: 20090506
  Serious: Yes (Disabling)
  Sender: FDA-Public Use
  Company Number: WAES 0705USA01542

PATIENT
  Age: 54 Year
  Sex: Female

DRUGS (4)
  1. FOSAMAX [Suspect]
     Indication: OSTEOPOROSIS
     Dosage: 70 MG/PO
     Route: 048
     Dates: start: 20041101
  2. FOSAMAX [Suspect]
     Indication: OSTEOPOROSIS
     Dosage: 70 MG/WKY/PO
     Route: 048
     Dates: start: 20050620, end: 20060620
  3. OS-CAL [Concomitant]
  4. PLAVIX [Concomitant]

REACTIONS (14)
  - ABDOMINAL PAIN [None]
  - ADVERSE DRUG REACTION [None]
  - ADVERSE EVENT [None]
  - ANXIETY [None]
  - CELLULITIS [None]
  - DEPRESSION [None]
  - GLUCOSE TOLERANCE IMPAIRED [None]
  - INSOMNIA [None]
  - IRRITABLE BOWEL SYNDROME [None]
  - OSTEOARTHRITIS [None]
  - PAIN IN JAW [None]
  - TEMPOROMANDIBULAR JOINT SYNDROME [None]
  - TINEA PEDIS [None]
  - TOOTH ABSCESS [None]
